FAERS Safety Report 5471826-0 (Version None)
Quarter: 2007Q3

REPORT INFORMATION
  Report Type: 
  Country: None (occurrence: None)
  Receive Date: 20070928
  Receipt Date: 20070614
  Transmission Date: 20080115
  Serious: No
  Sender: FDA-Public Use
  Company Number: US-BRISTOL-MYERS SQUIBB COMPANY-13814454

PATIENT
  Age: 81 Year
  Sex: Male
  Weight: 113 kg

DRUGS (12)
  1. DEFINITY [Suspect]
  2. METOPROLOL SUCCINATE [Concomitant]
  3. LASIX [Concomitant]
  4. GLYBURIDE [Concomitant]
  5. WARFARIN [Concomitant]
  6. LISINOPRIL [Concomitant]
  7. SIMVASTATIN [Concomitant]
  8. ASPIRIN [Concomitant]
  9. ASCORBIC ACID [Concomitant]
  10. NITROGLYCERIN [Concomitant]
  11. TERAZOSIN HCL [Concomitant]
  12. METOLAZONE [Concomitant]

REACTIONS (2)
  - PRURITUS [None]
  - RASH [None]
